FAERS Safety Report 19360769 (Version 1)
Quarter: 2021Q2

REPORT INFORMATION
  Report Type: Report from Study
  Country: None (occurrence: US)
  Receive Date: 20210602
  Receipt Date: 20210602
  Transmission Date: 20210717
  Serious: No
  Sender: FDA-Public Use
  Company Number: US-MDD US OPERATIONS-MDD202102-000239

PATIENT
  Age: 69 Year
  Sex: Male

DRUGS (1)
  1. APOKYN [Suspect]
     Active Substance: APOMORPHINE HYDROCHLORIDE
     Indication: PARKINSON^S DISEASE
     Dosage: NOT PROVIDED
     Dates: start: 202101, end: 20210204

REACTIONS (5)
  - Freezing phenomenon [Unknown]
  - Abnormal dreams [Unknown]
  - Therapeutic product effect decreased [Unknown]
  - Nightmare [Unknown]
  - Anxiety [Unknown]

NARRATIVE: CASE EVENT DATE: 202101
